FAERS Safety Report 13691779 (Version 1)
Quarter: 2017Q2

REPORT INFORMATION
  Report Type: Spontaneous
  Country: JP (occurrence: JP)
  Receive Date: 20170626
  Receipt Date: 20170626
  Transmission Date: 20170830
  Serious: Yes (Other)
  Sender: FDA-Public Use
  Company Number: JP-ALLERGAN-1726580US

PATIENT
  Age: 82 Year
  Sex: Female

DRUGS (2)
  1. BOTULINUM TOXIN TYPE A - BP [Suspect]
     Active Substance: BOTULINUM TOXIN TYPE A
     Indication: MUSCLE CONTRACTURE
     Dosage: UNK, SINGLE
     Route: 030
     Dates: start: 201606, end: 201606
  2. BOTULINUM TOXIN TYPE A - BP [Suspect]
     Active Substance: BOTULINUM TOXIN TYPE A
     Dosage: UNK, SINGLE
     Route: 030
     Dates: start: 2014, end: 2014

REACTIONS (2)
  - Product use in unapproved indication [Unknown]
  - Interstitial lung disease [Not Recovered/Not Resolved]

NARRATIVE: CASE EVENT DATE: 2016
